FAERS Safety Report 23355397 (Version 1)
Quarter: 2024Q1

REPORT INFORMATION
  Report Type: Spontaneous
  Country: TR (occurrence: TR)
  Receive Date: 20240102
  Receipt Date: 20240102
  Transmission Date: 20240410
  Serious: Yes (Hospitalization, Other)
  Sender: FDA-Public Use
  Company Number: TR-BoehringerIngelheim-2023-BI-280173

PATIENT
  Age: 43 Year
  Sex: Male

DRUGS (12)
  1. NINTEDANIB [Suspect]
     Active Substance: NINTEDANIB
     Indication: Systemic sclerosis pulmonary
  2. HYDROXYCHLOROQUINE [Concomitant]
     Active Substance: HYDROXYCHLOROQUINE
     Indication: Immunosuppressant drug therapy
  3. ASPIRIN [Concomitant]
     Active Substance: ASPIRIN
     Indication: Product used for unknown indication
  4. PANTOPRAZOLE [Concomitant]
     Active Substance: PANTOPRAZOLE
     Indication: Product used for unknown indication
  5. Calcium carbonate cholecalciferol [Concomitant]
     Indication: Product used for unknown indication
  6. AZATHIOPRINE [Concomitant]
     Active Substance: AZATHIOPRINE
     Indication: Immunosuppressant drug therapy
  7. PREDNISOLONE [Concomitant]
     Active Substance: PREDNISOLONE
     Indication: Immunosuppressant drug therapy
  8. CYCLOPHOSPHAMIDE [Concomitant]
     Active Substance: CYCLOPHOSPHAMIDE
     Indication: Immunosuppressant drug therapy
  9. BOSENTAN [Concomitant]
     Active Substance: BOSENTAN
     Indication: Product used for unknown indication
  10. DILTIAZEM HYDROCHLORIDE [Concomitant]
     Active Substance: DILTIAZEM HYDROCHLORIDE
     Indication: Product used for unknown indication
  11. SILDENAFIL [Concomitant]
     Active Substance: SILDENAFIL
     Indication: Product used for unknown indication
  12. METHYLPREDNISOLONE [Concomitant]
     Active Substance: METHYLPREDNISOLONE
     Indication: Product used for unknown indication

REACTIONS (1)
  - Pneumothorax spontaneous [Recovering/Resolving]
